FAERS Safety Report 8819692 (Version 1)
Quarter: 2012Q4

REPORT INFORMATION
  Report Type: 
  Country: FR (occurrence: FR)
  Receive Date: 20121001
  Receipt Date: 20121001
  Transmission Date: 20130627
  Serious: Yes (Hospitalization)
  Sender: FDA-Public Use
  Company Number: FR-JNJFOC-20120908635

PATIENT
  Age: 78 Year
  Sex: Female

DRUGS (6)
  1. DUROGESIC [Suspect]
     Indication: PRODUCT USED FOR UNKNOWN INDICATION
     Route: 062
  2. SEROPLEX [Suspect]
     Indication: DEPRESSION
     Route: 048
     Dates: end: 20120607
  3. LEXOMIL [Suspect]
     Indication: DEPRESSION
     Route: 048
     Dates: end: 20120607
  4. DOMPERIDONE [Concomitant]
     Route: 065
  5. CALCIUM VITAMINE D3 [Concomitant]
     Route: 065
  6. FOSAVANCE [Concomitant]
     Route: 065

REACTIONS (3)
  - Fall [Recovered/Resolved]
  - Hyponatraemia [Recovered/Resolved]
  - Rhabdomyolysis [Recovered/Resolved]
